FAERS Safety Report 8084876-5 (Version None)
Quarter: 2012Q1

REPORT INFORMATION
  Report Type: 
  Country: None (occurrence: None)
  Receive Date: 20120128
  Receipt Date: 20110318
  Transmission Date: 20120608
  Serious: No
  Sender: FDA-Public Use
  Company Number: US-ABBOTT-11P-163-0712916-00

PATIENT
  Age: 33 Year
  Sex: Female

DRUGS (5)
  1. FOSAMAX [Concomitant]
     Indication: PRODUCT USED FOR UNKNOWN INDICATION
     Route: 048
  2. PENTASA [Concomitant]
     Indication: CROHN'S DISEASE
     Route: 048
  3. HUMIRA [Suspect]
     Indication: CROHN'S DISEASE
     Dates: start: 20090101
  4. PURINETHOL [Concomitant]
     Indication: CROHN'S DISEASE
     Route: 048
  5. YASMIN [Concomitant]
     Indication: CONTRACEPTION

REACTIONS (2)
  - INJECTION SITE REACTION [None]
  - INJECTION SITE PRURITUS [None]
